FAERS Safety Report 7639680-6 (Version None)
Quarter: 2011Q3

REPORT INFORMATION
  Report Type: 
  Country: None (occurrence: None)
  Receive Date: 20110727
  Receipt Date: 20110714
  Transmission Date: 20111222
  Serious: Yes (Other)
  Sender: FDA-Public Use
  Company Number: GB-ELI_LILLY_AND_COMPANY-GB201107003666

PATIENT
  Age: 46 Year
  Sex: Male

DRUGS (3)
  1. OLANZAPINE [Suspect]
  2. CLOZAPINE [Concomitant]
     Dosage: UNK
     Route: 048
     Dates: start: 20100913, end: 20110224
  3. CLOZAPINE [Concomitant]
     Dosage: UNK
     Route: 048
     Dates: start: 20110307, end: 20110701

REACTIONS (5)
  - NEUTROPENIA [None]
  - THROMBOCYTOPENIA [None]
  - HEPATIC CIRRHOSIS [None]
  - LEUKOPENIA [None]
  - HEPATITIS C [None]
